FAERS Safety Report 7617493-9 (Version None)
Quarter: 2011Q3

REPORT INFORMATION
  Report Type: 
  Country: None (occurrence: None)
  Receive Date: 20110718
  Receipt Date: 20110716
  Transmission Date: 20111222
  Serious: No
  Sender: FDA-Public Use
  Company Number: US-PFIZER INC-2011161153

PATIENT
  Sex: Female
  Weight: 67.574 kg

DRUGS (5)
  1. CHANTIX [Suspect]
     Indication: SMOKING CESSATION THERAPY
     Dosage: 0.5 MG, DAILY
     Route: 048
     Dates: start: 20110101, end: 20110101
  2. LOTREL [Concomitant]
     Indication: HYPERTENSION
     Dosage: UNK
  3. LASIX [Concomitant]
     Indication: FLUID IMBALANCE
     Dosage: UNK
  4. SYNTHROID [Concomitant]
     Indication: THYROID DISORDER
     Dosage: UNK
  5. CHANTIX [Suspect]
     Dosage: 1 MG, 2X/DAY
     Route: 048
     Dates: start: 20110101

REACTIONS (1)
  - DRUG INEFFECTIVE [None]
